FAERS Safety Report 16488645 (Version 1)
Quarter: 2019Q2

REPORT INFORMATION
  Report Type: Spontaneous
  Country: US (occurrence: US)
  Receive Date: 20190627
  Receipt Date: 20190627
  Transmission Date: 20190711
  Serious: No
  Sender: FDA-Public Use
  Company Number: US-AVADEL LEGACY PHARMACEUTICALS, LLC-2019AVA00080

PATIENT
  Sex: Male
  Weight: 83.9 kg

DRUGS (3)
  1. NOCTIVA [Suspect]
     Active Substance: DESMOPRESSIN ACETATE
     Indication: NOCTURIA
     Dosage: 1.66 ?G, 1X/DAY 30 MINUTES BEFORE BEDTIME
     Route: 045
  2. NOCTIVA [Suspect]
     Active Substance: DESMOPRESSIN ACETATE
     Dosage: 1.66 ?G, 1X/DAY 30 MINUTES BEFORE BEDTIME
     Route: 045
     Dates: start: 201902
  3. NOCTIVA [Suspect]
     Active Substance: DESMOPRESSIN ACETATE
     Indication: NOCTURIA
     Dosage: 0.83 ?G, 1X/DAY APPROXIMATELY 30 MINUTES BEFORE BEDTIME
     Route: 045
     Dates: start: 2018

REACTIONS (3)
  - Drug ineffective [Not Recovered/Not Resolved]
  - Dysgeusia [Not Recovered/Not Resolved]
  - Poor quality sleep [Not Recovered/Not Resolved]

NARRATIVE: CASE EVENT DATE: 2018
